FAERS Safety Report 13514583 (Version 3)
Quarter: 2018Q2

REPORT INFORMATION
  Report Type: Spontaneous
  Country: JP (occurrence: JP)
  Receive Date: 20170504
  Receipt Date: 20180524
  Transmission Date: 20180711
  Serious: Yes (Death, Hospitalization, Other)
  Sender: FDA-Public Use
  Company Number: JP-PFIZER INC-2017192852

PATIENT
  Age: 74 Year
  Sex: Female
  Weight: 52.4 kg

DRUGS (8)
  1. MAGMITT [Concomitant]
     Active Substance: MAGNESIUM OXIDE
     Route: 048
  2. ALFAROL [Concomitant]
     Active Substance: ALFACALCIDOL
     Route: 048
  3. INLYTA [Suspect]
     Active Substance: AXITINIB
     Indication: RENAL CELL CARCINOMA
     Dosage: 5 MG, 2X/DAY
     Route: 048
     Dates: start: 20170306, end: 20170426
  4. BLOPRESS [Concomitant]
     Active Substance: CANDESARTAN CILEXETIL
     Route: 048
  5. TAGAMET [Concomitant]
     Active Substance: CIMETIDINE
     Route: 048
  6. CALONAL [Concomitant]
     Active Substance: ACETAMINOPHEN
     Route: 048
  7. ABSTRAL [Concomitant]
     Active Substance: FENTANYL CITRATE
     Route: 048
  8. LOXOPROFEN [Suspect]
     Active Substance: LOXOPROFEN
     Route: 048

REACTIONS (3)
  - Gastrointestinal perforation [Recovering/Resolving]
  - Neoplasm progression [Fatal]
  - Cholecystitis [Recovering/Resolving]

NARRATIVE: CASE EVENT DATE: 20170426
